FAERS Safety Report 4582507-X (Version None)
Quarter: 2005Q1

REPORT INFORMATION
  Report Type: 
  Country: None (occurrence: None)
  Receive Date: 20050127
  Receipt Date: 20040923
  Transmission Date: 20050727
  Serious: No
  Sender: FDA-Public Use
  Company Number: USA040979135

PATIENT
  Sex: Female

DRUGS (1)
  1. STRATTERA [Suspect]
     Dosage: 80 MG
     Dates: start: 20040101

REACTIONS (6)
  - BLOOD PRESSURE INCREASED [None]
  - EXCITABILITY [None]
  - HEADACHE [None]
  - HEART RATE INCREASED [None]
  - HYPERTONIA [None]
  - STRESS [None]
